FAERS Safety Report 9184997 (Version 1)
Quarter: 2013Q1

REPORT INFORMATION
  Report Type: Spontaneous
  Country: US (occurrence: US)
  Receive Date: 20130325
  Receipt Date: 20130325
  Transmission Date: 20140127
  Serious: No
  Sender: FDA-Public Use
  Company Number: US-PFIZER INC-2013094620

PATIENT
  Age: 55 Year
  Sex: Female
  Weight: 92.97 kg

DRUGS (8)
  1. LYRICA [Suspect]
     Indication: FIBROMYALGIA
     Dosage: 300 MG, 2X/DAY
     Dates: start: 2005, end: 201303
  2. LYRICA [Suspect]
     Indication: NEUROPATHY PERIPHERAL
  3. LYRICA [Suspect]
     Indication: NERVE INJURY
  4. CYMBALTA [Suspect]
     Indication: FIBROMYALGIA
     Dosage: 60 MG, 2X/DAY
  5. CYMBALTA [Suspect]
     Indication: PAIN IN EXTREMITY
  6. CYMBALTA [Suspect]
     Indication: DEPRESSION
  7. VICODIN [Suspect]
     Indication: PAIN IN EXTREMITY
     Dosage: 10/500 MG, 4X/DAY
  8. SOMA [Concomitant]
     Indication: MUSCLE DISORDER
     Dosage: 350 MG, 3X/DAY

REACTIONS (2)
  - Pain in extremity [Not Recovered/Not Resolved]
  - Muscular weakness [Not Recovered/Not Resolved]
